FAERS Safety Report 8285035-3 (Version None)
Quarter: 2012Q2

REPORT INFORMATION
  Report Type: 
  Country: None (occurrence: None)
  Receive Date: 20120413
  Receipt Date: 20120220
  Transmission Date: 20120825
  Serious: No
  Sender: FDA-Public Use
  Company Number: US-ASTRAZENECA-2012SE07495

PATIENT
  Age: 58 Year
  Sex: Female

DRUGS (2)
  1. NEXIUM [Suspect]
     Route: 048
  2. DEXILANT [Concomitant]

REACTIONS (13)
  - ANXIETY [None]
  - GASTROOESOPHAGEAL REFLUX DISEASE [None]
  - IMPAIRED GASTRIC EMPTYING [None]
  - MALAISE [None]
  - DIARRHOEA [None]
  - DRUG DOSE OMISSION [None]
  - ARTHRITIS [None]
  - CONDITION AGGRAVATED [None]
  - MAJOR DEPRESSION [None]
  - NAUSEA [None]
  - DIABETES MELLITUS [None]
  - CONSTIPATION [None]
  - WRONG TECHNIQUE IN DRUG USAGE PROCESS [None]
